FAERS Safety Report 7463426-8 (Version None)
Quarter: 2011Q2

REPORT INFORMATION
  Report Type: 
  Country: None (occurrence: None)
  Receive Date: 20110506
  Receipt Date: 20110427
  Transmission Date: 20111010
  Serious: Yes (Disabling, Other)
  Sender: FDA-Public Use
  Company Number: B0715704A

PATIENT
  Sex: Male

DRUGS (3)
  1. SERETIDE [Suspect]
     Indication: ASTHMA
     Dosage: 500UG PER DAY
     Route: 055
     Dates: start: 20100601
  2. SINGULAIR [Concomitant]
     Route: 065
  3. XOLAIR [Suspect]
     Indication: ASTHMA
     Dosage: 375MG EVERY TWO WEEKS
     Route: 058
     Dates: start: 20090301

REACTIONS (1)
  - MYALGIA [None]
